FAERS Safety Report 13902595 (Version 1)
Quarter: 2017Q3

REPORT INFORMATION
  Report Type: Spontaneous
  Country: US (occurrence: US)
  Receive Date: 20170824
  Receipt Date: 20170824
  Transmission Date: 20171127
  Serious: No
  Sender: FDA-Public Use
  Company Number: US-ROCHE-787586

PATIENT
  Sex: Female

DRUGS (4)
  1. NAVELBINE [Concomitant]
     Active Substance: VINORELBINE TARTRATE
     Route: 065
  2. HERCEPTIN [Suspect]
     Active Substance: TRASTUZUMAB
     Indication: BREAST CANCER
     Dosage: FORM: INFUSIONS
     Route: 042
  3. HERCEPTIN [Suspect]
     Active Substance: TRASTUZUMAB
     Route: 042
  4. NAVELBINE [Concomitant]
     Active Substance: VINORELBINE TARTRATE
     Route: 065

REACTIONS (3)
  - Metastases to skin [Unknown]
  - Fatigue [Unknown]
  - Blood pressure fluctuation [Unknown]
